FAERS Safety Report 4963031-9 (Version None)
Quarter: 2006Q1

REPORT INFORMATION
  Report Type: 
  Country: None (occurrence: None)
  Receive Date: 20060331
  Receipt Date: 20060314
  Transmission Date: 20060701
  Serious: Yes (Hospitalization)
  Sender: FDA-Public Use
  Company Number: 230025K06ITA

PATIENT
  Sex: Female

DRUGS (3)
  1. REBIF [Suspect]
     Indication: MULTIPLE SCLEROSIS
     Dosage: 44 MCG, 3 IN 1 WEEKS
     Dates: start: 20051101
  2. MAGNESIUM HYDROXIDE TAB [Concomitant]
  3. ASCORBIC ACID [Concomitant]

REACTIONS (2)
  - CONVULSION [None]
  - HEADACHE [None]
